FAERS Safety Report 19101142 (Version 1)
Quarter: 2021Q2

REPORT INFORMATION
  Report Type: Spontaneous
  Country: US (occurrence: US)
  Receive Date: 20210407
  Receipt Date: 20210407
  Transmission Date: 20210717
  Serious: Yes (Hospitalization, Other)
  Sender: FDA-Public Use
  Company Number: US-ACCORD-221804

PATIENT
  Age: 76 Year
  Sex: Male

DRUGS (14)
  1. OXYCODONE [Concomitant]
     Active Substance: OXYCODONE
     Dosage: 10 MG EVERY 4 HOURS
     Route: 048
  2. CLONIDINE. [Concomitant]
     Active Substance: CLONIDINE
     Indication: PAIN
     Dosage: 0.1 MG TID, INCREASED TO 0.2 MG TID
  3. PARACETAMOL [Concomitant]
     Active Substance: ACETAMINOPHEN
  4. SENNA ALEXANDRINA [Concomitant]
     Active Substance: SENNA LEAF
  5. ATROPINE. [Concomitant]
     Active Substance: ATROPINE
  6. GABAPENTIN. [Concomitant]
     Active Substance: GABAPENTIN
     Indication: PAIN
     Dosage: 100 MG TID
  7. DOCUSATE/DOCUSATE CALCIUM/DOCUSATE POTASSIUM/DOCUSATE SODIUM [Concomitant]
     Active Substance: DOCUSATE
  8. FENTANYL. [Concomitant]
     Active Substance: FENTANYL
     Indication: ANALGESIC THERAPY
  9. NEOSTIGMINE. [Interacting]
     Active Substance: NEOSTIGMINE METHYLSULFATE
     Indication: INTESTINAL PSEUDO-OBSTRUCTION
     Dosage: WAS INITIATED ON HOSPITAL DAY 9. ?0.4 MG/HR
     Route: 041
  10. BISACODYL. [Concomitant]
     Active Substance: BISACODYL
  11. METOCLOPRAMIDE. [Concomitant]
     Active Substance: METOCLOPRAMIDE
     Dosage: 10 MG INTRAVENOUS EVERY 6 HOURS
     Route: 042
  12. PROPOFOL. [Concomitant]
     Active Substance: PROPOFOL
     Indication: SEDATION
  13. MACROGOL [Concomitant]
     Active Substance: POLYETHYLENE GLYCOLS
  14. DEXMEDETOMIDINE/DEXMEDETOMIDINE HYDROCHLORIDE [Suspect]
     Active Substance: DEXMEDETOMIDINE HYDROCHLORIDE
     Indication: SEDATION
     Dosage: 1.4 MCG/KG/H
     Route: 041

REACTIONS (5)
  - Bradycardia [Recovered/Resolved]
  - Drug interaction [Unknown]
  - Hypotension [Recovered/Resolved]
  - Cardiac arrest [Recovered/Resolved]
  - Haemodynamic instability [Recovered/Resolved]
